FAERS Safety Report 7018874-7 (Version None)
Quarter: 2010Q3

REPORT INFORMATION
  Report Type: 
  Country: None (occurrence: None)
  Receive Date: 20100928
  Receipt Date: 20100917
  Transmission Date: 20110219
  Serious: Yes (Other)
  Sender: FDA-Public Use
  Company Number: FR-PFIZER INC-2010113809

PATIENT
  Age: 86 Year
  Sex: Male

DRUGS (12)
  1. NEURONTIN [Suspect]
     Dosage: 1 DF, 2X/DAY
     Route: 048
  2. SOTALEX [Suspect]
     Dosage: 1 DF, 1X/DAY
     Route: 048
  3. FLUDEX [Suspect]
     Dosage: 1 DF, 1X/DAY
     Route: 048
     Dates: end: 20091229
  4. TOPALGIC [Suspect]
     Dosage: 1 DF, 1X/DAY
     Route: 048
     Dates: end: 20091229
  5. VALPROATE SODIUM [Suspect]
     Dosage: 1 DF, 2X/DAY
     Route: 048
  6. KARDEGIC [Suspect]
     Dosage: 1 DF, 1X/DAY
     Route: 048
  7. KARDEGIC [Suspect]
     Dosage: 160 MG A DAY
  8. SERETIDE [Suspect]
     Dosage: 1 DF, 2X/DAY
     Route: 055
  9. INIPOMP [Suspect]
     Dosage: 1 DF, 1X/DAY
     Route: 048
  10. ALLOPURINOL [Suspect]
     Dosage: 1 DF, 1X/DAY
     Route: 048
  11. TAMSULOSIN (MECIR) [Suspect]
     Dosage: 1 DF, 1X/DAY
     Dates: end: 20091229
  12. COLCHICINE [Suspect]
     Dosage: 1 DF, 1X/DAY
     Dates: start: 20080601, end: 20091225

REACTIONS (2)
  - LOSS OF CONSCIOUSNESS [None]
  - MALAISE [None]
